FAERS Safety Report 16697542 (Version 9)
Quarter: 2019Q4

REPORT INFORMATION
  Report Type: Report from Study
  Country: US (occurrence: US)
  Receive Date: 20190813
  Receipt Date: 20191031
  Transmission Date: 20200122
  Serious: Yes (Hospitalization)
  Sender: FDA-Public Use
  Company Number: US-ROCHE-2368763

PATIENT
  Age: 41 Year
  Sex: Female
  Weight: 86.2 kg

DRUGS (16)
  1. OCRELIZUMAB. [Suspect]
     Active Substance: OCRELIZUMAB
     Indication: PRIMARY PROGRESSIVE MULTIPLE SCLEROSIS
     Dosage: SUBSEQUENT DOSE ON: 19/JAN/2016, 17/JUN/2016, 30/JUN/2016, 04/AUG/2016, 08/DEC/2016, 22/DEC/2016, 19
     Route: 042
     Dates: start: 20160104
  2. DIPHENHYDRAMINE. [Concomitant]
     Active Substance: DIPHENHYDRAMINE
     Dosage: SUBSEQUENT DOSE ON: 01/OCT/2012, 15/OCT/2012, 25/MAR/2013, 12/APR/2013, 09/SEP/2013, 30/SEP/2013, 24
     Route: 065
     Dates: start: 20121001
  3. EXCEDRIN [Concomitant]
     Active Substance: ACETAMINOPHEN\ASPIRIN\CAFFEINE
     Indication: INFLUENZA LIKE ILLNESS
     Route: 065
     Dates: start: 20180406, end: 20180418
  4. MODAFINIL. [Concomitant]
     Active Substance: MODAFINIL
     Indication: FATIGUE
     Route: 065
     Dates: start: 20171220
  5. DALFAMPRIDINE. [Concomitant]
     Active Substance: DALFAMPRIDINE
     Indication: MUSCLE SPASTICITY
     Route: 065
     Dates: start: 201206
  6. OCRELIZUMAB. [Suspect]
     Active Substance: OCRELIZUMAB
     Indication: PRIMARY PROGRESSIVE MULTIPLE SCLEROSIS
     Dosage: SUBSEQUENT DOSE ON: 01/OCT/2012, 15/OCT/2012, 25/MAR/2013, 12/APR/2013, 09/SEP/2013, 30/SEP/2013, 24
     Route: 042
     Dates: start: 20121001
  7. ACETAMINOPHEN. [Concomitant]
     Active Substance: ACETAMINOPHEN
     Indication: HEADACHE
     Dosage: SUBSEQUENT DOSE ON: 01/OCT/2012, 15/OCT/2012, 25/MAR/2013, 12/APR/2013, 09/SEP/2013, 30/SEP/2013, 24
     Route: 065
     Dates: start: 20121001
  8. ACETAMINOPHEN. [Concomitant]
     Active Substance: ACETAMINOPHEN
     Route: 065
     Dates: start: 2004
  9. ALBUTEROL [SALBUTAMOL] [Concomitant]
     Active Substance: ALBUTEROL
     Indication: PNEUMONIA
     Dosage: 1 INHALAATION
     Route: 065
     Dates: start: 20190221, end: 20190415
  10. NYSTATIN. [Concomitant]
     Active Substance: NYSTATIN
     Indication: RASH
     Dosage: 3 PACKET
     Route: 065
     Dates: start: 20190731
  11. OXYBUTYNIN. [Concomitant]
     Active Substance: OXYBUTYNIN CHLORIDE
     Dosage: BLADDER SYMPTOMS
     Route: 065
     Dates: start: 20140708
  12. FERROUS SULFATE. [Concomitant]
     Active Substance: FERROUS SULFATE
     Indication: IRON DEFICIENCY ANAEMIA
     Route: 065
     Dates: start: 20160126
  13. ZOLOFT [Concomitant]
     Active Substance: SERTRALINE HYDROCHLORIDE
     Indication: DEPRESSION
     Route: 065
     Dates: start: 20181215
  14. METHYLPREDNISOLONE. [Concomitant]
     Active Substance: METHYLPREDNISOLONE
     Dosage: SUBSEQUENT DOSE ON: 01/OCT/2012, 15/OCT/2012, 25/MAR/2013, 12/APR/2013, 09/SEP/2013, 30/SEP/2013, 24
     Route: 065
     Dates: start: 20121001
  15. VICKS DAYQUIL [Concomitant]
     Active Substance: DEXTROMETHORPHAN HYDROBROMIDE\GUAIFENESIN
     Indication: PNEUMONIA
     Route: 065
     Dates: start: 20190218, end: 20190221
  16. OXYBUTYNIN. [Concomitant]
     Active Substance: OXYBUTYNIN CHLORIDE
     Route: 065
     Dates: start: 20180430

REACTIONS (1)
  - Sepsis [Recovered/Resolved]

NARRATIVE: CASE EVENT DATE: 20190702
